FAERS Safety Report 7414448-4 (Version None)
Quarter: 2011Q2

REPORT INFORMATION
  Report Type: 
  Country: None (occurrence: None)
  Receive Date: 20110414
  Receipt Date: 20110311
  Transmission Date: 20111010
  Serious: Yes (Hospitalization)
  Sender: FDA-Public Use
  Company Number: US-BAYER-201035874NA

PATIENT
  Age: 36 Year
  Sex: Female
  Weight: 114 kg

DRUGS (7)
  1. YAZ [Suspect]
     Indication: CONTRACEPTION
     Route: 048
     Dates: start: 20060926, end: 20090609
  2. YAZ [Suspect]
     Indication: POLYCYSTIC OVARIES
  3. SYNTHROID [Concomitant]
     Indication: HYPOTHYROIDISM
     Dosage: UNK
     Dates: start: 20010101
  4. ANTIBIOTICS [Concomitant]
  5. IBUPROFEN [Concomitant]
     Indication: PAIN
  6. DIOVAN [Concomitant]
     Dosage: UNK
     Dates: start: 20090101, end: 20090601
  7. VITAMIN D [Concomitant]
     Indication: VITAMIN D DEFICIENCY
     Dosage: UNK
     Dates: start: 20090301

REACTIONS (2)
  - DEEP VEIN THROMBOSIS [None]
  - PULMONARY EMBOLISM [None]
